FAERS Safety Report 5920496-3 (Version None)
Quarter: 2008Q4

REPORT INFORMATION
  Report Type: 
  Country: None (occurrence: None)
  Receive Date: 20081016
  Receipt Date: 20081006
  Transmission Date: 20090506
  Serious: Yes (Hospitalization, Other)
  Sender: FDA-Public Use
  Company Number: B0505448A

PATIENT
  Age: 29 Year
  Sex: Female

DRUGS (8)
  1. KIVEXA [Suspect]
     Indication: HIV INFECTION
     Dosage: 1TAB PER DAY
     Route: 048
     Dates: start: 20071115, end: 20071214
  2. ZIAGEN [Suspect]
     Indication: HIV INFECTION
     Dosage: 300MG TWICE PER DAY
     Route: 048
     Dates: start: 20071214, end: 20080115
  3. SUSTIVA [Suspect]
     Indication: HIV INFECTION
     Dosage: 600MG PER DAY
     Route: 048
     Dates: start: 20071115
  4. MALOCIDE [Suspect]
     Indication: CEREBRAL TOXOPLASMOSIS
     Route: 048
     Dates: start: 20071007
  5. ADIAZINE [Suspect]
     Indication: CEREBRAL TOXOPLASMOSIS
     Route: 048
     Dates: start: 20071007
  6. VIDEX [Suspect]
     Indication: HIV INFECTION
     Dosage: 250MG PER DAY
     Route: 048
     Dates: start: 20071214, end: 20080116
  7. FOLIC ACID [Concomitant]
  8. LEDERFOLINE [Concomitant]

REACTIONS (3)
  - AGRANULOCYTOSIS [None]
  - CONDITION AGGRAVATED [None]
  - NEUTROPENIA [None]
